FAERS Safety Report 8281306-5 (Version None)
Quarter: 2012Q2

REPORT INFORMATION
  Report Type: 
  Country: None (occurrence: None)
  Receive Date: 20120413
  Receipt Date: 20120406
  Transmission Date: 20120825
  Serious: No
  Sender: FDA-Public Use
  Company Number: US-PFIZER INC-2012087550

PATIENT

DRUGS (1)
  1. ATGAM [Suspect]
     Indication: APLASTIC ANAEMIA
     Dosage: UNK
     Route: 042
     Dates: start: 20120406

REACTIONS (4)
  - THROAT IRRITATION [None]
  - PYREXIA [None]
  - HYPOTENSION [None]
  - URTICARIA [None]
